FAERS Safety Report 6207292-7 (Version None)
Quarter: 2009Q2

REPORT INFORMATION
  Report Type: 
  Country: None (occurrence: None)
  Receive Date: 20090526
  Receipt Date: 20090511
  Transmission Date: 20091009
  Serious: Yes (Death)
  Sender: FDA-Public Use
  Company Number: 2009000398

PATIENT
  Age: 73 Week
  Sex: Male
  Weight: 68.9 kg

DRUGS (9)
  1. ERLOTINIB (ERLOTINIB) (TABLET) (ERLOTINIB) [Suspect]
     Indication: NON-SMALL CELL LUNG CANCER
     Dosage: 150, ORAL
     Route: 048
     Dates: start: 20090122, end: 20090126
  2. DILAUDID [Concomitant]
  3. DILTIAZEM [Concomitant]
  4. METOPROLOL (METOPROLOL) [Concomitant]
  5. SIMVASTATIN [Concomitant]
  6. ENOXAPARIN SODIUM [Concomitant]
  7. ALBUTEROL [Concomitant]
  8. OLANZAPINE [Concomitant]
  9. SODIUM CHLORIDE [Concomitant]

REACTIONS (5)
  - DISEASE PROGRESSION [None]
  - FLUID INTAKE REDUCED [None]
  - NON-SMALL CELL LUNG CANCER METASTATIC [None]
  - RESPIRATORY ARREST [None]
  - SUDDEN DEATH [None]
